FAERS Safety Report 12618453 (Version 1)
Quarter: 2016Q3

REPORT INFORMATION
  Report Type: Spontaneous
  Country: US (occurrence: None)
  Receive Date: 20160802
  Receipt Date: 20160802
  Transmission Date: 20161109
  Serious: No
  Sender: FDA-Public Use
  Company Number: None

PATIENT
  Age: 56 Year
  Sex: Female

DRUGS (1)
  1. GLEEVEC [Suspect]
     Active Substance: IMATINIB MESYLATE
     Indication: CHRONIC MYELOID LEUKAEMIA
     Dates: start: 20110101, end: 20160801

REACTIONS (5)
  - Diarrhoea [None]
  - Muscle spasms [None]
  - Oedema peripheral [None]
  - Oedema [None]
  - Eye oedema [None]

NARRATIVE: CASE EVENT DATE: 20110101
